FAERS Safety Report 8852849 (Version 1)
Quarter: 2012Q4

REPORT INFORMATION
  Report Type: 
  Country: GB (occurrence: GB)
  Receive Date: 20121022
  Receipt Date: 20121022
  Transmission Date: 20130627
  Serious: Yes (Life-Threatening, Hospitalization)
  Sender: FDA-Public Use
  Company Number: GB-OTSUKA-EU-2012-10263

PATIENT
  Age: 76 Year
  Sex: Male
  Weight: 66.2 kg

DRUGS (12)
  1. SAMSCA [Suspect]
     Indication: HYPONATRAEMIA
     Dosage: 15 Mg milligram(s), qd
     Route: 048
     Dates: start: 20120911, end: 20120916
  2. DOMPERIDONE [Concomitant]
     Indication: NAUSEA
     Dosage: 10 Mg milligram(s), tid
     Route: 048
  3. ENOXAPARIN [Concomitant]
     Indication: THROMBOSIS PROPHYLAXIS
     Dosage: 40 Mg milligram(s), qd
     Route: 058
  4. FERROUS FUMARATE [Concomitant]
     Indication: HAEMOGLOBIN DECREASED
     Dosage: 322 Mg milligram(s), bid
     Route: 048
  5. GLICLAZIDE [Concomitant]
     Dosage: 30 Mg milligram(s), qd
     Route: 048
  6. LACTULOSE [Concomitant]
     Indication: CONSTIPATION
     Dosage: 10 ml millilitre(s), tid
     Route: 048
  7. METFORMIN [Concomitant]
     Dosage: 500 Mg milligram(s), bid
     Route: 048
  8. PARACETAMOL [Concomitant]
     Indication: PAIN
     Dosage: 1 G gram(s), qid
     Route: 048
  9. RANITIDINE [Concomitant]
     Indication: GASTRIC DISORDER
     Dosage: 150 Mg milligram(s), bid
     Route: 048
  10. RANITIDINE [Concomitant]
     Indication: PROPHYLAXIS
  11. ROSUVASTATIN [Concomitant]
     Indication: BLOOD CHOLESTEROL INCREASED
     Dosage: 10 Mg milligram(s), qd
     Route: 048
  12. TAZOCIN [Concomitant]
     Indication: SEPSIS
     Dosage: 4.5 G gram(s), tid
     Route: 042
     Dates: start: 20120917

REACTIONS (2)
  - Gastric ulcer [Not Recovered/Not Resolved]
  - Upper gastrointestinal haemorrhage [Not Recovered/Not Resolved]
